FAERS Safety Report 14232289 (Version 1)
Quarter: 2017Q4

REPORT INFORMATION
  Report Type: Spontaneous
  Country: AU (occurrence: AU)
  Receive Date: 20171128
  Receipt Date: 20171128
  Transmission Date: 20180321
  Serious: Yes (Other)
  Sender: FDA-Public Use
  Company Number: AU-ELI_LILLY_AND_COMPANY-AU201711009075

PATIENT
  Age: 21 Year
  Sex: Female

DRUGS (3)
  1. CYMBALTA [Suspect]
     Active Substance: DULOXETINE HYDROCHLORIDE
     Dosage: 30 MG, QOD
     Route: 048
  2. CYMBALTA [Suspect]
     Active Substance: DULOXETINE HYDROCHLORIDE
     Indication: ANXIETY
     Dosage: 60 MG, DAILY
     Route: 048
  3. CYMBALTA [Suspect]
     Active Substance: DULOXETINE HYDROCHLORIDE
     Dosage: 30 MG, DAILY
     Route: 048

REACTIONS (6)
  - Nausea [Unknown]
  - Dizziness [Unknown]
  - Withdrawal syndrome [Unknown]
  - Irritability [Unknown]
  - Syncope [Unknown]
  - Gastric disorder [Unknown]

NARRATIVE: CASE EVENT DATE: 20171103
